FAERS Safety Report 9200716 (Version 2)
Quarter: 2013Q2

REPORT INFORMATION
  Report Type: Spontaneous
  Country: US (occurrence: US)
  Receive Date: 20130401
  Receipt Date: 20130418
  Transmission Date: 20140414
  Serious: No
  Sender: FDA-Public Use
  Company Number: US-009507513-1303USA009329

PATIENT
  Sex: 0

DRUGS (1)
  1. EMEND FOR INJECTION [Suspect]

REACTIONS (5)
  - Pain in extremity [Unknown]
  - Infusion site pain [Unknown]
  - Skin irritation [Unknown]
  - Erythema [Unknown]
  - Blister [Unknown]
